FAERS Safety Report 8115700-X (Version None)
Quarter: 2012Q1

REPORT INFORMATION
  Report Type: 
  Country: None (occurrence: None)
  Receive Date: 20120113
  Receipt Date: 20120109
  Transmission Date: 20120608
  Serious: Yes (Other)
  Sender: FDA-Public Use
  Company Number: 2012030677

PATIENT
  Age: 24 Month
  Sex: Female
  Weight: 10.4327 kg

DRUGS (2)
  1. HIZENTRA [Suspect]
     Indication: IMMUNODEFICIENCY COMMON VARIABLE
     Dosage: (SUBCUTANEOUS), (2 G/1X/WEEK, (10 ML) 3-4 SITES OVER 1 HOUR AND 50 MINUTES SUBCUTANCOUS)
     Route: 058
     Dates: start: 20111216
  2. HIZENTRA [Suspect]
     Indication: IMMUNODEFICIENCY COMMON VARIABLE
     Dosage: (SUBCUTANEOUS), (2 G/1X/WEEK, (10 ML) 3-4 SITES OVER 1 HOUR AND 50 MINUTES SUBCUTANCOUS)
     Route: 058
     Dates: start: 20110826

REACTIONS (2)
  - RESPIRATORY TRACT INFECTION [None]
  - SPUTUM DISCOLOURED [None]
